FAERS Safety Report 5080580-6 (Version None)
Quarter: 2006Q3

REPORT INFORMATION
  Report Type: 
  Country: None (occurrence: None)
  Receive Date: 20060815
  Receipt Date: 20060810
  Transmission Date: 20061208
  Serious: Yes (Hospitalization)
  Sender: FDA-Public Use
  Company Number: US-GLAXOSMITHKLINE-A0616133A

PATIENT
  Sex: Male

DRUGS (2)
  1. EPIVIR-HBV [Suspect]
     Dosage: 100MG PER DAY
     Route: 048
  2. VITAMIN B50 [Concomitant]

REACTIONS (8)
  - ASTHENIA [None]
  - EAR PAIN [None]
  - MYALGIA [None]
  - POOR QUALITY DRUG ADMINISTERED [None]
  - RASH [None]
  - ROCKY MOUNTAIN SPOTTED FEVER [None]
  - THERAPEUTIC RESPONSE UNEXPECTED [None]
  - TREATMENT NONCOMPLIANCE [None]
